FAERS Safety Report 4932137-2 (Version None)
Quarter: 2006Q1

REPORT INFORMATION
  Report Type: 
  Country: None (occurrence: None)
  Receive Date: 20060303
  Receipt Date: 20051118
  Transmission Date: 20060701
  Serious: Yes (Other)
  Sender: FDA-Public Use
  Company Number: PHMT2005CA00675

PATIENT
  Age: 42 Year
  Sex: Female

DRUGS (3)
  1. CLOZARIL [Suspect]
     Dosage: 300 MG, QD
     Dates: start: 20000424
  2. SEROQUEL [Concomitant]
     Dosage: 100 MG, UNK
     Dates: start: 20031201
  3. DIANE - 35 ^SCHERING AG^ [Concomitant]

REACTIONS (4)
  - LYMPHADENOPATHY [None]
  - LYMPHOMA [None]
  - NEUTROPHIL COUNT DECREASED [None]
  - WHITE BLOOD CELL COUNT DECREASED [None]
